FAERS Safety Report 10097233 (Version 2)
Quarter: 2014Q2

REPORT INFORMATION
  Report Type: Report from Study
  Country: US (occurrence: US)
  Receive Date: 20140422
  Receipt Date: 20140507
  Transmission Date: 20141212
  Serious: Yes (Other)
  Sender: FDA-Public Use
  Company Number: PHEH2014US007681

PATIENT
  Age: 26 Year
  Sex: Female
  Weight: 66.21 kg

DRUGS (7)
  1. GILENYA [Suspect]
     Indication: MULTIPLE SCLEROSIS
     Dosage: 0.5 MG, QD
     Route: 048
     Dates: start: 201306
  2. GILENYA [Suspect]
     Dosage: 0.5 MG, QOD
     Route: 048
     Dates: start: 201402
  3. BUPROPION [Concomitant]
     Indication: DEPRESSED MOOD
     Dosage: 150 MG, QD
     Route: 048
  4. YAZ [Concomitant]
     Indication: ORAL CONTRACEPTION
     Route: 048
  5. ADDERALL [Concomitant]
     Indication: FATIGUE
     Route: 048
  6. ZYRTEC [Concomitant]
     Indication: HYPERSENSITIVITY
     Dosage: 10 MG, UNK
     Route: 048
  7. SYMBICORT [Concomitant]
     Indication: ASTHMA

REACTIONS (4)
  - Leukopenia [Not Recovered/Not Resolved]
  - Lymphocyte count decreased [Not Recovered/Not Resolved]
  - Central nervous system lesion [Not Recovered/Not Resolved]
  - Prescribed underdose [Not Recovered/Not Resolved]
